FAERS Safety Report 18689354 (Version 2)
Quarter: 2021Q1

REPORT INFORMATION
  Report Type: Report from Study
  Country: DE (occurrence: DE)
  Receive Date: 20201231
  Receipt Date: 20210108
  Transmission Date: 20210419
  Serious: Yes (Other)
  Sender: FDA-Public Use
  Company Number: DE-AMGEN-DEUNI2020212012

PATIENT
  Age: 57 Year
  Sex: Female
  Weight: 66 kg

DRUGS (6)
  1. IRINOTECAN [Suspect]
     Active Substance: IRINOTECAN
     Indication: COLORECTAL CANCER METASTATIC
     Dosage: 315 MILLIGRAM
     Route: 065
     Dates: start: 20190806
  2. IRINOTECAN [Suspect]
     Active Substance: IRINOTECAN
     Dosage: 315 MILLIGRAM
     Route: 065
     Dates: start: 20191223
  3. PANITUMUMAB [Suspect]
     Active Substance: PANITUMUMAB
     Indication: COLORECTAL CANCER METASTATIC
     Dosage: 396 MILLIGRAM
     Route: 042
     Dates: start: 20190903
  4. FLUOROURACIL. [Suspect]
     Active Substance: FLUOROURACIL
     Indication: COLORECTAL CANCER METASTATIC
     Dosage: 4200 MILLIGRAM
     Route: 042
     Dates: start: 20190806
  5. IRINOTECAN [Suspect]
     Active Substance: IRINOTECAN
     Dosage: 396 MILLIGRAM
     Route: 065
     Dates: start: 20191210
  6. FOLINIC ACID [Suspect]
     Active Substance: LEUCOVORIN
     Indication: COLORECTAL CANCER METASTATIC
     Dosage: 875 MILLIGRAM
     Route: 065
     Dates: start: 20190806

REACTIONS (2)
  - Rash erythematous [Recovered/Resolved]
  - Paronychia [Recovered/Resolved]

NARRATIVE: CASE EVENT DATE: 20201123
